FAERS Safety Report 20003655 (Version 2)
Quarter: 2025Q3

REPORT INFORMATION
  Report Type: Spontaneous
  Country: EU (occurrence: EU)
  Receive Date: 20211028
  Receipt Date: 20250709
  Transmission Date: 20251020
  Serious: Yes (Other)
  Sender: AUROBINDO
  Company Number: EU-PIRAMAL PHARMA LIMITED-2021-PEL-000764

PATIENT
  Age: 34 Year
  Sex: Female

DRUGS (3)
  1. ROPIVACAINE [Suspect]
     Active Substance: ROPIVACAINE
     Indication: Epidural analgesia
     Route: 065
  2. ROPIVACAINE [Suspect]
     Active Substance: ROPIVACAINE
     Route: 065
  3. FENTANYL [Suspect]
     Active Substance: FENTANYL
     Indication: Epidural analgesia
     Route: 065

REACTIONS (5)
  - Horner^s syndrome [Unknown]
  - Maternal exposure during delivery [Unknown]
  - Vomiting [Recovered/Resolved]
  - Off label use [Unknown]
  - Product use issue [Unknown]
